FAERS Safety Report 5178193-0 (Version None)
Quarter: 2006Q4

REPORT INFORMATION
  Report Type: 
  Country: None (occurrence: None)
  Receive Date: 20061218
  Receipt Date: 20060809
  Transmission Date: 20070319
  Serious: No
  Sender: FDA-Public Use
  Company Number: US-AMGEN-KDL189418

PATIENT
  Sex: Female

DRUGS (4)
  1. ENBREL [Suspect]
     Indication: DRUG USE FOR UNKNOWN INDICATION
     Dates: start: 20060601, end: 20060801
  2. SINGULAIR [Concomitant]
  3. WELLBUTRIN [Concomitant]
  4. MOBIC [Concomitant]

REACTIONS (2)
  - CONJUNCTIVITIS INFECTIVE [None]
  - LYMPHADENOPATHY [None]
